FAERS Safety Report 15473390 (Version 1)
Quarter: 2018Q4

REPORT INFORMATION
  Report Type: Spontaneous
  Country: US (occurrence: US)
  Receive Date: 20181008
  Receipt Date: 20181008
  Transmission Date: 20190205
  Serious: Yes (Hospitalization, Other)
  Sender: FDA-Public Use
  Company Number: US-SA-2018SA271828

PATIENT
  Age: 77 Year
  Sex: Female
  Weight: 57.3 kg

DRUGS (18)
  1. 5-FU [FLUOROURACIL] [Suspect]
     Active Substance: FLUOROURACIL
     Dosage: 3720 MG, QCY
     Route: 042
     Dates: start: 20180801, end: 20180803
  2. ADIRO [Concomitant]
     Active Substance: ASPIRIN
  3. RANITIDINA [RANITIDINE] [Concomitant]
     Dosage: UNK
     Dates: start: 20180801
  4. HIBOR [Concomitant]
     Active Substance: BEMIPARIN SODIUM
     Dosage: UNK
     Dates: start: 20180711
  5. ZYLORIC [Concomitant]
     Active Substance: ALLOPURINOL
  6. HYDROCHLOROTHIAZIDE. [Concomitant]
     Active Substance: HYDROCHLOROTHIAZIDE
  7. DEXAMETHASONE. [Concomitant]
     Active Substance: DEXAMETHASONE
     Dosage: UNK
     Dates: start: 20180801
  8. 5-FU [FLUOROURACIL] [Suspect]
     Active Substance: FLUOROURACIL
     Indication: PANCREATIC CARCINOMA METASTATIC
     Dosage: 620 MG, QCY
     Route: 040
     Dates: start: 20180801, end: 20180803
  9. OMEPRAZOLE. [Concomitant]
     Active Substance: OMEPRAZOLE
     Dosage: UNK
     Dates: start: 20180307
  10. SIMVASTATINA [Concomitant]
     Active Substance: SIMVASTATIN
  11. EUTIROX [Concomitant]
     Active Substance: LEVOTHYROXINE SODIUM
  12. DEXCLORFENIRAMINA [Concomitant]
     Active Substance: DEXCHLORPHENIRAMINE
     Dosage: UNK
     Dates: start: 20180801
  13. OXALIPLATIN. [Suspect]
     Active Substance: OXALIPLATIN
     Indication: PANCREATIC CARCINOMA METASTATIC
     Dosage: 132 MG, QCY
     Route: 042
     Dates: start: 20180801, end: 20180801
  14. LEUCOVORINE [Suspect]
     Active Substance: LEUCOVORIN
     Indication: PANCREATIC CARCINOMA METASTATIC
     Dosage: 620 MG, QCY
     Route: 042
     Dates: start: 20180801, end: 20180801
  15. FENTANILO [FENTANYL] [Concomitant]
     Dosage: UNK
     Route: 065
     Dates: start: 20180725
  16. METFORMINA [METFORMIN] [Concomitant]
  17. ONDANSETRON [Concomitant]
     Active Substance: ONDANSETRON
     Dosage: UNK
     Dates: start: 20180801
  18. PARACETAMOL [Concomitant]
     Active Substance: ACETAMINOPHEN
     Dosage: UNK
     Dates: start: 20180801

REACTIONS (3)
  - Metastases to meninges [Recovered/Resolved]
  - General physical health deterioration [Recovered/Resolved]
  - Vomiting [Recovered/Resolved]

NARRATIVE: CASE EVENT DATE: 20180803
